FAERS Safety Report 13744047 (Version 2)
Quarter: 2017Q4

REPORT INFORMATION
  Report Type: Report from Study
  Country: None (occurrence: US)
  Receive Date: 20170712
  Receipt Date: 20171031
  Transmission Date: 20180320
  Serious: Yes (Other)
  Sender: FDA-Public Use
  Company Number: US-ABBVIE-17K-163-2031877-00

PATIENT
  Sex: Female

DRUGS (6)
  1. METHOTREXATE. [Concomitant]
     Active Substance: METHOTREXATE
     Indication: PRODUCT USED FOR UNKNOWN INDICATION
  2. DOTERRA [Concomitant]
     Indication: PRODUCT USED FOR UNKNOWN INDICATION
  3. NABUMETONE. [Concomitant]
     Active Substance: NABUMETONE
     Indication: PRODUCT USED FOR UNKNOWN INDICATION
  4. OMEGA OIL [Concomitant]
     Indication: PRODUCT USED FOR UNKNOWN INDICATION
  5. DEEP BLUE [Concomitant]
     Indication: PRODUCT USED FOR UNKNOWN INDICATION
  6. HUMIRA [Suspect]
     Active Substance: ADALIMUMAB
     Indication: RHEUMATOID ARTHRITIS
     Route: 058
     Dates: start: 2008

REACTIONS (9)
  - Dry eye [Recovering/Resolving]
  - Eye disorder [Recovering/Resolving]
  - Osteoarthritis [Recovering/Resolving]
  - Joint adhesion [Unknown]
  - Synovial cyst [Recovered/Resolved]
  - Eye disorder [Not Recovered/Not Resolved]
  - Photophobia [Recovering/Resolving]
  - Rheumatoid arthritis [Recovering/Resolving]
  - Visual impairment [Recovering/Resolving]

NARRATIVE: CASE EVENT DATE: 2013
